FAERS Safety Report 19274653 (Version 1)
Quarter: 2021Q2

REPORT INFORMATION
  Report Type: Report from Study
  Country: US (occurrence: US)
  Receive Date: 20210519
  Receipt Date: 20210519
  Transmission Date: 20210717
  Serious: Yes (Hospitalization, Other)
  Sender: FDA-Public Use
  Company Number: US-ASTELLAS-2021US017901

PATIENT
  Age: 51 Year
  Sex: Male

DRUGS (2)
  1. TACROLIMUS. [Suspect]
     Active Substance: TACROLIMUS
     Indication: TRANSPLANT
     Dosage: UNK UNK, UNKNOWN FREQ.
     Route: 065
  2. PREDNISONE. [Concomitant]
     Active Substance: PREDNISONE
     Indication: TRANSPLANT
     Route: 065

REACTIONS (6)
  - Pneumonia [Recovering/Resolving]
  - Pneumonia pseudomonal [Recovering/Resolving]
  - Bacterial infection [Recovering/Resolving]
  - Product use in unapproved indication [Unknown]
  - Corynebacterium infection [Recovering/Resolving]
  - Chronic respiratory failure [Recovering/Resolving]
